FAERS Safety Report 18347406 (Version 3)
Quarter: 2021Q1

REPORT INFORMATION
  Report Type: Spontaneous
  Country: NL (occurrence: NL)
  Receive Date: 20201006
  Receipt Date: 20210204
  Transmission Date: 20210419
  Serious: Yes (Hospitalization)
  Sender: FDA-Public Use
  Company Number: NVSC2020NL262516

PATIENT
  Age: 62 Year
  Sex: Female
  Weight: 79.9 kg

DRUGS (12)
  1. FLUDARABINE [Suspect]
     Active Substance: FLUDARABINE PHOSPHATE
     Indication: B-CELL LYMPHOMA
     Dosage: 50 MG, QD
     Route: 042
     Dates: start: 20200801, end: 20200803
  2. LEVETIRACETAM. [Concomitant]
     Active Substance: LEVETIRACETAM
     Indication: PRODUCT USED FOR UNKNOWN INDICATION
     Dosage: 1500 MG, QD
     Route: 048
     Dates: start: 20200806, end: 20200817
  3. LEVETIRACETAM. [Concomitant]
     Active Substance: LEVETIRACETAM
     Dosage: 1500 MG, BID
     Route: 048
     Dates: start: 20200817, end: 20200821
  4. VALACYCLOVIR [Concomitant]
     Active Substance: VALACYCLOVIR HYDROCHLORIDE
     Indication: PRODUCT USED FOR UNKNOWN INDICATION
     Dosage: 1000 MG, BID
     Route: 048
     Dates: start: 20200608, end: 20200817
  5. LANOXIN [Concomitant]
     Active Substance: DIGOXIN
     Indication: ATRIAL FIBRILLATION
     Dosage: UNK
     Route: 065
  6. HEPARIN [Concomitant]
     Active Substance: HEPARIN SODIUM
     Indication: THROMBOSIS PROPHYLAXIS
     Dosage: UNK
     Route: 065
     Dates: start: 20200731, end: 20200817
  7. CYCLOPHOSPHAMIDE. [Suspect]
     Active Substance: CYCLOPHOSPHAMIDE
     Indication: B-CELL LYMPHOMA
     Dosage: 500 MG, QD
     Route: 042
     Dates: start: 20200801, end: 20200803
  8. SOTALOL. [Concomitant]
     Active Substance: SOTALOL
     Indication: ATRIAL FIBRILLATION
     Dosage: UNK
     Route: 065
  9. FLUCONAZOLE. [Concomitant]
     Active Substance: FLUCONAZOLE
     Indication: PRODUCT USED FOR UNKNOWN INDICATION
     Dosage: UNK
     Route: 065
     Dates: start: 20200808, end: 20200817
  10. CIPROFLOXACIN. [Concomitant]
     Active Substance: CIPROFLOXACIN
     Indication: PRODUCT USED FOR UNKNOWN INDICATION
     Dosage: 1000 MG, BID
     Route: 048
     Dates: start: 20200808, end: 20200817
  11. PERINDOPRIL [Concomitant]
     Active Substance: PERINDOPRIL
     Indication: HYPERTENSION
     Dosage: UNK
     Route: 065
  12. RIVAROXABAN [Concomitant]
     Active Substance: RIVAROXABAN
     Indication: PRODUCT USED FOR UNKNOWN INDICATION
     Dosage: 20 MG, QD
     Route: 048
     Dates: start: 20200807, end: 20200817

REACTIONS (12)
  - Neutropenia [Recovered/Resolved with Sequelae]
  - Injury [Recovered/Resolved]
  - Adverse drug reaction [Unknown]
  - Pyrexia [Unknown]
  - Febrile neutropenia [Recovered/Resolved]
  - Cytokine release syndrome [Recovered/Resolved]
  - Facial bones fracture [Unknown]
  - Cough [Unknown]
  - Phlebitis [Not Recovered/Not Resolved]
  - Fall [Recovered/Resolved]
  - Subdural haematoma [Unknown]
  - Fracture [Unknown]

NARRATIVE: CASE EVENT DATE: 202008
